FAERS Safety Report 7829001-8 (Version None)
Quarter: 2011Q4

REPORT INFORMATION
  Report Type: 
  Country: None (occurrence: None)
  Receive Date: 20111020
  Receipt Date: 20111011
  Transmission Date: 20120403
  Serious: Yes (Other)
  Sender: FDA-Public Use
  Company Number: US-ELI_LILLY_AND_COMPANY-US_011075703

PATIENT
  Sex: Female

DRUGS (4)
  1. HUMULIN N [Suspect]
     Dosage: UNK UNK, BID
  2. INSULIN, ANIMAL [Suspect]
     Indication: DIABETES MELLITUS
     Dosage: UNK, UNKNOWN
     Route: 058
  3. HUMULIN N [Suspect]
     Dosage: UNK UNK, BID
  4. HUMULIN N [Suspect]
     Indication: DIABETES MELLITUS
     Dosage: UNK UNK, BID
     Route: 058

REACTIONS (3)
  - EYE HAEMORRHAGE [None]
  - VISUAL ACUITY REDUCED [None]
  - CHEST PAIN [None]
